FAERS Safety Report 6526728-5 (Version None)
Quarter: 2009Q4

REPORT INFORMATION
  Report Type: 
  Country: None (occurrence: None)
  Receive Date: 20091214
  Receipt Date: 20081203
  Transmission Date: 20100525
  Serious: Yes (Other)
  Sender: FDA-Public Use
  Company Number: 601019

PATIENT
  Age: 59 Year
  Sex: Female
  Weight: 76.7 kg

DRUGS (7)
  1. PEGASYS [Suspect]
     Indication: HEPATITIS C
     Dosage: 180 UG 1 PER WEEK SUBCUTANEOUS
     Route: 058
     Dates: start: 20081107
  2. COPEGUS [Suspect]
     Indication: HEPATITIS C
     Dosage: 400 MG 2 PER DAY ORAL
     Route: 048
     Dates: start: 20081107
  3. WELLBUTRIN [Concomitant]
  4. PROZAC [Concomitant]
  5. RESTORIL [Concomitant]
  6. LYRICA [Concomitant]
  7. TYLENOL [Concomitant]

REACTIONS (1)
  - BLOOD PRESSURE INCREASED [None]
